FAERS Safety Report 17226851 (Version 1)
Quarter: 2020Q3

REPORT INFORMATION
  Report Type: Spontaneous
  Country: DE (occurrence: DE)
  Receive Date: 20200102
  Receipt Date: 20200102
  Transmission Date: 20201104
  Serious: Yes (Death)
  Sender: FDA-Public Use
  Company Number: DE-TEVA-2019-DE-1124889

PATIENT
  Sex: Male

DRUGS (11)
  1. DEXAMETHASONE. [Suspect]
     Active Substance: DEXAMETHASONE
     Indication: DIFFUSE LARGE B-CELL LYMPHOMA
     Dosage: (1ST LINE, R?CHOEP 8 CYCLES)
     Route: 065
     Dates: start: 20180815
  2. POLATUZUMAB VEDOTIN. [Suspect]
     Active Substance: POLATUZUMAB VEDOTIN
     Indication: DIFFUSE LARGE B-CELL LYMPHOMA
     Dosage: (1ST LINE, R?CHOEP 8 CYCLES)
     Route: 065
     Dates: start: 20180815
  3. RITUXAN [Suspect]
     Active Substance: RITUXIMAB
     Indication: DIFFUSE LARGE B-CELL LYMPHOMA
     Dosage: (1ST LINE, R?CHOEP 8 CYCLES)
     Route: 065
     Dates: start: 20180815
  4. CYCLOPHOSPHAMIDE. [Suspect]
     Active Substance: CYCLOPHOSPHAMIDE
     Indication: DIFFUSE LARGE B-CELL LYMPHOMA
     Dosage: (1ST LINE, R?CHOEP 8 CYCLES)
     Route: 065
     Dates: start: 20180815
  5. RITUXAN [Suspect]
     Active Substance: RITUXIMAB
     Dosage: (FURTHER LINE, R?BENDAMSUTIN?MITOXANTRONE)
     Route: 065
     Dates: start: 20190507
  6. METHOTREXATE. [Suspect]
     Active Substance: METHOTREXATE
     Indication: DIFFUSE LARGE B-CELL LYMPHOMA
     Dosage: (1ST LINE, R?CHOEP 8 CYCLES)
     Route: 065
     Dates: start: 20180815
  7. AZATHIOPRINE. [Suspect]
     Active Substance: AZATHIOPRINE
     Indication: DIFFUSE LARGE B-CELL LYMPHOMA
     Dosage: (1ST LINE, R?CHOEP 8 CYCLES)
     Route: 065
     Dates: start: 20180815
  8. RITUXAN [Suspect]
     Active Substance: RITUXIMAB
     Dosage: CYCLIC (FURTHER LINE, R?BENDAMSUTIN?MITOXANTRONE)
     Route: 065
     Dates: start: 20190607
  9. RITUXAN [Suspect]
     Active Substance: RITUXIMAB
     Dosage: (2ND LINE, R?DHAOX 2 CYCLES)
     Route: 065
     Dates: start: 20190323
  10. THALIDOMIDE [Suspect]
     Active Substance: THALIDOMIDE
     Indication: DIFFUSE LARGE B-CELL LYMPHOMA
     Dosage: (1ST LINE, R?CHOEP 8 CYCLES)
     Route: 065
     Dates: start: 20180815
  11. BENDAMUSTINE HYDROCHLORIDE. [Suspect]
     Active Substance: BENDAMUSTINE HYDROCHLORIDE
     Indication: DIFFUSE LARGE B-CELL LYMPHOMA
     Dosage: (1ST LINE, R?CHOEP 8 CYCLES)
     Route: 042
     Dates: start: 20180815

REACTIONS (7)
  - Blood bilirubin decreased [Unknown]
  - Neutrophil count decreased [Unknown]
  - Product use in unapproved indication [Unknown]
  - Blood creatinine increased [Unknown]
  - Death [Fatal]
  - Aspartate aminotransferase increased [Unknown]
  - Platelet count decreased [Unknown]
